FAERS Safety Report 9470732 (Version 1)
Quarter: 2013Q3

REPORT INFORMATION
  Report Type: Spontaneous
  Country: DK (occurrence: DK)
  Receive Date: 20130822
  Receipt Date: 20130822
  Transmission Date: 20140515
  Serious: Yes (Hospitalization)
  Sender: FDA-Public Use
  Company Number: DK-B.I. PHARMACEUTICALS,INC./RIDGEFIELD-2013-SW-00403DB

PATIENT
  Sex: Male

DRUGS (6)
  1. PRADAXA [Suspect]
     Indication: ATRIAL FIBRILLATION
     Dosage: 220 MG
     Route: 048
     Dates: start: 20130109, end: 20130813
  2. HJERTEMAGNYL [Concomitant]
  3. METOPROLOLSUCCINAT [Concomitant]
  4. SIMVASTATIN [Concomitant]
  5. DIGXOIN [Concomitant]
  6. SPIRIX [Concomitant]

REACTIONS (5)
  - Gastric ulcer [Not Recovered/Not Resolved]
  - Weight decreased [Unknown]
  - Dysphagia [Unknown]
  - Oropharyngeal pain [Unknown]
  - Oesophageal ulcer [Not Recovered/Not Resolved]
